FAERS Safety Report 4314668-1 (Version None)
Quarter: 2004Q1

REPORT INFORMATION
  Report Type: 
  Country: None (occurrence: None)
  Receive Date: 20040308
  Receipt Date: 20040226
  Transmission Date: 20041129
  Serious: Yes (Other)
  Sender: FDA-Public Use
  Company Number: 2004013031

PATIENT

DRUGS (1)
  1. UNASYN [Suspect]
     Indication: INFECTION PROPHYLAXIS
     Dosage: INTRAVENOUS
     Route: 042
     Dates: start: 20040224, end: 20040224

REACTIONS (1)
  - SHOCK [None]
